FAERS Safety Report 4708754-1 (Version None)
Quarter: 2005Q3

REPORT INFORMATION
  Report Type: 
  Country: None (occurrence: None)
  Receive Date: 20050706
  Receipt Date: 20050627
  Transmission Date: 20060218
  Serious: Yes (Hospitalization)
  Sender: FDA-Public Use
  Company Number: 2005US000788

PATIENT
  Age: 24 Year
  Sex: Female
  Weight: 60 kg

DRUGS (5)
  1. PROGRAF [Suspect]
     Indication: PROPHYLAXIS AGAINST TRANSPLANT REJECTION
     Dosage: 12.00 MG, UID/QD, ORAL
     Route: 048
     Dates: start: 20050318
  2. PREDNISONE [Suspect]
     Indication: PROPHYLAXIS AGAINST TRANSPLANT REJECTION
     Dosage: 7.50 MG, UID/QD, ORAL
     Route: 048
     Dates: start: 20050603
  3. SIROLIMUS (SIROLIMUS) SOLUTION [Suspect]
     Dosage: 2.00 MG, UID/QD, ORAL
     Route: 048
     Dates: start: 20050311
  4. BACTRIM [Concomitant]
  5. RANITIDINE [Concomitant]

REACTIONS (3)
  - ESCHERICHIA URINARY TRACT INFECTION [None]
  - GRAFT DYSFUNCTION [None]
  - PYELONEPHRITIS ACUTE [None]
